FAERS Safety Report 5080421-7 (Version None)
Quarter: 2006Q3

REPORT INFORMATION
  Report Type: 
  Country: None (occurrence: None)
  Receive Date: 20060814
  Receipt Date: 20060814
  Transmission Date: 20061208
  Serious: Yes (Other)
  Sender: FDA-Public Use
  Company Number: None

PATIENT
  Age: 47 Year
  Sex: Female
  Weight: 52.1637 kg

DRUGS (1)
  1. FOSAMAX [Suspect]
     Indication: OSTEOPENIA
     Dosage: ONE TIME PO Q WEEK   ONE DOSE
     Route: 048
     Dates: start: 20060721

REACTIONS (4)
  - ACTIVITIES OF DAILY LIVING IMPAIRED [None]
  - BONE PAIN [None]
  - INFLUENZA [None]
  - MALAISE [None]
